FAERS Safety Report 21646548 (Version 1)
Quarter: 2022Q4

REPORT INFORMATION
  Report Type: Spontaneous
  Country: DK (occurrence: DK)
  Receive Date: 20221126
  Receipt Date: 20221126
  Transmission Date: 20230113
  Serious: Yes (Hospitalization)
  Sender: FDA-Public Use
  Company Number: None

PATIENT
  Age: 84 Year
  Sex: Female

DRUGS (3)
  1. OXYCODONE [Suspect]
     Active Substance: OXYCODONE
     Indication: Pain
     Dosage: STRENGTH: 5 MG DOSAGE: 5 MG AS NECESSARY, MAX. 5 TIMES A DAY.
     Dates: start: 20221031
  2. TRAMADOL [Suspect]
     Active Substance: TRAMADOL
     Indication: Pain
     Dosage: STRENGTH AND DOSE: 50 MG, DURATION 1 DAY
     Dates: start: 20221031, end: 20221101
  3. OXYCODONE HYDROCHLORIDE [Suspect]
     Active Substance: OXYCODONE HYDROCHLORIDE
     Indication: Pain
     Dosage: STRENGTH: UNKNOWN.?DOSAGE: UNKNOWN.
     Dates: start: 20221031

REACTIONS (2)
  - Constipation [Not Recovered/Not Resolved]
  - Urinary retention [Not Recovered/Not Resolved]

NARRATIVE: CASE EVENT DATE: 20221031
